FAERS Safety Report 7940548-6 (Version None)
Quarter: 2011Q4

REPORT INFORMATION
  Report Type: 
  Country: None (occurrence: None)
  Receive Date: 20111114
  Receipt Date: 20110403
  Transmission Date: 20120403
  Serious: Yes (Other)
  Sender: FDA-Public Use
  Company Number: 2011S1000111

PATIENT
  Age: 46 Year
  Sex: Male
  Weight: 119 kg

DRUGS (6)
  1. LORTAB [Concomitant]
  2. OMEPRAZOLE [Concomitant]
  3. CUBICIN [Suspect]
     Indication: ABSCESS LIMB
     Dosage: 750 MG;Q48H;IV
     Route: 042
     Dates: start: 20110208, end: 20110218
  4. METOPROLOL TARTRATE [Concomitant]
  5. VANCOMYCIN [Concomitant]
  6. PIPERACILLIN AND TAZOBACTAM [Concomitant]

REACTIONS (2)
  - BLOOD CREATINE PHOSPHOKINASE INCREASED [None]
  - RHABDOMYOLYSIS [None]
